FAERS Safety Report 20578549 (Version 1)
Quarter: 2022Q1

REPORT INFORMATION
  Report Type: Spontaneous
  Country: US (occurrence: None)
  Receive Date: 20220306
  Receipt Date: 20220306
  Transmission Date: 20220424
  Serious: No
  Sender: FDA-Public Use
  Company Number: None

PATIENT
  Sex: Female

DRUGS (2)
  1. LECITHIN [Suspect]
     Active Substance: LECITHIN
  2. SODIUM DESOXYCHOLATE [Suspect]
     Active Substance: SODIUM DESOXYCHOLATE

REACTIONS (3)
  - Product label issue [None]
  - Erythema [None]
  - Skin burning sensation [None]
